FAERS Safety Report 12739472 (Version 1)
Quarter: 2016Q3

REPORT INFORMATION
  Report Type: Spontaneous
  Country: US (occurrence: US)
  Receive Date: 20160912
  Receipt Date: 20160912
  Transmission Date: 20161109
  Serious: Yes (Other)
  Sender: FDA-Public Use
  Company Number: None

PATIENT
  Age: 31 Year
  Sex: Female
  Weight: 104.33 kg

DRUGS (2)
  1. WOMEN^S MULTI VITAMINS [Concomitant]
  2. NEXPLANON [Suspect]
     Active Substance: ETONOGESTREL

REACTIONS (3)
  - Complication associated with device [None]
  - Vaginal haemorrhage [None]
  - Ovarian cyst [None]

NARRATIVE: CASE EVENT DATE: 20160909
